FAERS Safety Report 14755908 (Version 2)
Quarter: 2018Q2

REPORT INFORMATION
  Report Type: Spontaneous
  Country: US (occurrence: US)
  Receive Date: 20180413
  Receipt Date: 20180423
  Transmission Date: 20180711
  Serious: No
  Sender: FDA-Public Use
  Company Number: US-PFIZER INC-2018152225

PATIENT
  Age: 53 Year
  Sex: Female

DRUGS (3)
  1. DIFLUCAN [Suspect]
     Active Substance: FLUCONAZOLE
     Dosage: UNK
  2. AMOXICILLIN. [Suspect]
     Active Substance: AMOXICILLIN
     Dosage: UNK
  3. LISINOPRIL. [Suspect]
     Active Substance: LISINOPRIL
     Dosage: UNK

REACTIONS (1)
  - Drug hypersensitivity [Unknown]
